FAERS Safety Report 13458645 (Version 1)
Quarter: 2017Q2

REPORT INFORMATION
  Report Type: Report from Study
  Country: CA (occurrence: CA)
  Receive Date: 20170419
  Receipt Date: 20170419
  Transmission Date: 20170830
  Serious: Yes (Hospitalization)
  Sender: FDA-Public Use
  Company Number: CA-JNJFOC-20170410165

PATIENT
  Age: 55 Year
  Sex: Male

DRUGS (1)
  1. SIMPONI [Suspect]
     Active Substance: GOLIMUMAB
     Indication: RHEUMATOID ARTHRITIS
     Route: 058
     Dates: start: 20091127

REACTIONS (14)
  - Leukopenia [Not Recovered/Not Resolved]
  - Abdominal discomfort [Unknown]
  - Renal impairment [Not Recovered/Not Resolved]
  - Mouth ulceration [Not Recovered/Not Resolved]
  - Vomiting [Unknown]
  - Asthenia [Unknown]
  - Blood urine present [Unknown]
  - Dehydration [Not Recovered/Not Resolved]
  - Syncope [Unknown]
  - Viral infection [Not Recovered/Not Resolved]
  - Fall [Unknown]
  - Diarrhoea [Unknown]
  - Hypotension [Not Recovered/Not Resolved]
  - Face injury [Unknown]

NARRATIVE: CASE EVENT DATE: 20170323
